FAERS Safety Report 12983782 (Version 1)
Quarter: 2016Q4

REPORT INFORMATION
  Report Type: Spontaneous
  Country: FR (occurrence: FR)
  Receive Date: 20161129
  Receipt Date: 20161129
  Transmission Date: 20170207
  Serious: Yes (Hospitalization)
  Sender: FDA-Public Use
  Company Number: FR-ROCHE-1855823

PATIENT
  Age: 41 Year
  Sex: Male

DRUGS (12)
  1. ZELBORAF [Suspect]
     Active Substance: VEMURAFENIB
     Indication: MALIGNANT MELANOMA
     Route: 048
     Dates: start: 20160524
  2. COTELLIC [Suspect]
     Active Substance: COBIMETINIB
     Indication: MALIGNANT MELANOMA
     Route: 048
     Dates: start: 20160524
  3. DUROGESIC [Concomitant]
     Active Substance: FENTANYL
  4. KEPPRA [Concomitant]
     Active Substance: LEVETIRACETAM
     Route: 065
  5. INEXIUM [Concomitant]
     Active Substance: ESOMEPRAZOLE
  6. DIFFU K [Concomitant]
     Active Substance: POTASSIUM CHLORIDE
     Route: 065
  7. NORSET [Concomitant]
     Active Substance: MIRTAZAPINE
     Dosage: SCORE COATED-FILM TABLET
     Route: 065
  8. COTELLIC [Suspect]
     Active Substance: COBIMETINIB
     Route: 048
  9. ZELBORAF [Suspect]
     Active Substance: VEMURAFENIB
     Dosage: 720 MG IN THE MORNING AND IN THE EVENING
     Route: 048
     Dates: start: 20160616
  10. LEXOMIL [Concomitant]
     Active Substance: BROMAZEPAM
     Dosage: DOUBLE-SCORED TABLET
     Route: 065
  11. DOLIPRANE [Concomitant]
     Active Substance: ACETAMINOPHEN
  12. COTELLIC [Suspect]
     Active Substance: COBIMETINIB
     Route: 048
     Dates: start: 20160616

REACTIONS (1)
  - Ejection fraction decreased [Recovered/Resolved]

NARRATIVE: CASE EVENT DATE: 20160622
